FAERS Safety Report 10034701 (Version 1)
Quarter: 2014Q1

REPORT INFORMATION
  Report Type: Spontaneous
  Country: GB (occurrence: GB)
  Receive Date: 20140325
  Receipt Date: 20140325
  Transmission Date: 20141002
  Serious: Yes (Other)
  Sender: FDA-Public Use
  Company Number: GB-MYLANLABS-2014S1005649

PATIENT
  Age: 66 Year
  Sex: Female
  Weight: 67 kg

DRUGS (10)
  1. ATORVASTATIN [Suspect]
     Dates: start: 20140303
  2. CLOPIDOGREL [Concomitant]
     Dates: start: 20140226
  3. FLIXONASE [Concomitant]
     Dates: start: 20140107, end: 20140204
  4. FLIXONASE [Concomitant]
     Dates: start: 20131115, end: 20131213
  5. FLIXONASE [Concomitant]
     Dates: start: 20140226
  6. PREDNISOLONE [Concomitant]
     Dates: start: 20140210, end: 20140215
  7. QVAR [Concomitant]
     Dates: start: 20140210
  8. QVAR [Concomitant]
     Dates: start: 20140107
  9. SALBUTAMOL [Concomitant]
     Dates: start: 20140211
  10. WHITE SOFT PARAFFIN [Concomitant]
     Dates: start: 20140224

REACTIONS (1)
  - Rash [Recovered/Resolved]
